FAERS Safety Report 9145690 (Version 1)
Quarter: 2013Q1

REPORT INFORMATION
  Report Type: Spontaneous
  Country: US (occurrence: None)
  Receive Date: 20130227
  Receipt Date: 20130227
  Transmission Date: 20140127
  Serious: Yes (Other)
  Sender: FDA-Public Use
  Company Number: None

PATIENT
  Sex: Female
  Weight: 117.48 kg

DRUGS (2)
  1. BUPROPRION XL 300MG [Suspect]
     Dosage: BUPROPRION XL 300MG DAILY PO
     Route: 048
     Dates: start: 20130103, end: 20130204
  2. BUPROPRION XL 300MG [Suspect]
     Dosage: BUPROPRION XL 300MG DAILY PO
     Route: 048
     Dates: start: 20130103, end: 20130204

REACTIONS (3)
  - Heart rate increased [None]
  - Choking sensation [None]
  - Chest discomfort [None]
